FAERS Safety Report 5550573-0 (Version None)
Quarter: 2007Q4

REPORT INFORMATION
  Report Type: 
  Country: None (occurrence: None)
  Receive Date: 20071210
  Receipt Date: 20071126
  Transmission Date: 20080405
  Serious: Yes (Life-Threatening, Hospitalization, Other)
  Sender: FDA-Public Use
  Company Number: 43311

PATIENT
  Age: 49 Year
  Sex: Female

DRUGS (1)
  1. PROPOFOL [Suspect]
     Indication: INTUBATION
     Dosage: 4MG/KG/H

REACTIONS (3)
  - BRONCHOALVEOLAR LAVAGE ABNORMAL [None]
  - LUNG INFILTRATION [None]
  - LUNG INJURY [None]
